FAERS Safety Report 6026583-6 (Version None)
Quarter: 2008Q4

REPORT INFORMATION
  Report Type: 
  Country: None (occurrence: None)
  Receive Date: 20081231
  Receipt Date: 20081217
  Transmission Date: 20090506
  Serious: Yes (Hospitalization)
  Sender: FDA-Public Use
  Company Number: 2008S1013416

PATIENT
  Age: 38 Year
  Sex: Female
  Weight: 71.3962 kg

DRUGS (5)
  1. GUANFACINE HYDROCHLORIDE [Suspect]
     Indication: ATTENTION DEFICIT/HYPERACTIVITY DISORDER
     Dosage: 8 MG; X1;ORAL
     Route: 048
     Dates: start: 20080703, end: 20080703
  2. PLACEBO [Suspect]
     Indication: ATTENTION DEFICIT/HYPERACTIVITY DISORDER
     Dosage: ORAL
     Route: 048
     Dates: start: 20080703, end: 20080703
  3. DOCUSATE [Concomitant]
  4. METAMUCIL [Concomitant]
  5. MOXIFLOXACIN HYDROCHLORIDE [Suspect]
     Indication: ATTENTION DEFICIT/HYPERACTIVITY DISORDER
     Dosage: ORAL
     Route: 048
     Dates: start: 20080703, end: 20080703

REACTIONS (7)
  - CONSTIPATION [None]
  - DIZZINESS [None]
  - ILEUS [None]
  - LOSS OF CONSCIOUSNESS [None]
  - ORTHOSTATIC HYPOTENSION [None]
  - TINNITUS [None]
  - VOMITING [None]
